FAERS Safety Report 7043421-3 (Version None)
Quarter: 2010Q4

REPORT INFORMATION
  Report Type: 
  Country: None (occurrence: None)
  Receive Date: 20101013
  Receipt Date: 20101005
  Transmission Date: 20110411
  Serious: Yes (Death, Hospitalization, Other)
  Sender: FDA-Public Use
  Company Number: PHHY2010MX66901

PATIENT
  Age: 69 Year
  Sex: Female

DRUGS (1)
  1. DIOVAN [Suspect]
     Dosage: 80 MG, BID
     Route: 048
     Dates: end: 20091122

REACTIONS (9)
  - ACCIDENT [None]
  - CONDITION AGGRAVATED [None]
  - DEATH [None]
  - FALL [None]
  - LOWER LIMB FRACTURE [None]
  - LUNG DISORDER [None]
  - LUNG NEOPLASM MALIGNANT [None]
  - MYOMECTOMY [None]
  - SURGERY [None]
